FAERS Safety Report 15688807 (Version 3)
Quarter: 2019Q1

REPORT INFORMATION
  Report Type: Report from Study
  Country: AU (occurrence: AU)
  Receive Date: 20181205
  Receipt Date: 20190329
  Transmission Date: 20190417
  Serious: Yes (Other)
  Sender: FDA-Public Use
  Company Number: AU-BRISTOL-MYERS SQUIBB COMPANY-BMS-2018-092926

PATIENT
  Age: 25 Year
  Sex: Female

DRUGS (2)
  1. NIVOLUMAB [Suspect]
     Active Substance: NIVOLUMAB
     Indication: MALIGNANT MELANOMA
     Dosage: 225 MG, Q2WK
     Route: 042
  2. NUROFEN                            /00109201/ [Concomitant]
     Active Substance: IBUPROFEN
     Indication: PRODUCT USED FOR UNKNOWN INDICATION
     Dosage: UNK
     Route: 065

REACTIONS (13)
  - Dry skin [Unknown]
  - Nasopharyngitis [Unknown]
  - Vomiting [Unknown]
  - Hand fracture [Unknown]
  - Headache [Unknown]
  - Mouth ulceration [Unknown]
  - Rhinorrhoea [Unknown]
  - Concussion [Unknown]
  - Pain in jaw [Unknown]
  - Constipation [Unknown]
  - Temperature intolerance [Unknown]
  - Chest pain [Unknown]
  - Diarrhoea [Unknown]

NARRATIVE: CASE EVENT DATE: 20190314
